FAERS Safety Report 5605906-3 (Version None)
Quarter: 2008Q1

REPORT INFORMATION
  Report Type: 
  Country: None (occurrence: None)
  Receive Date: 20080129
  Receipt Date: 20080115
  Transmission Date: 20080703
  Serious: Yes (Hospitalization)
  Sender: FDA-Public Use
  Company Number: AU-AMGEN-QUU256176

PATIENT
  Age: 53 Year
  Sex: Male

DRUGS (4)
  1. NEULASTA [Suspect]
     Indication: CHEMOTHERAPY
     Route: 058
     Dates: start: 20070617, end: 20070617
  2. ETOPOPHOS PRESERVATIVE FREE [Concomitant]
     Route: 042
     Dates: start: 20070613, end: 20070615
  3. CARBOPLATIN [Concomitant]
     Route: 042
     Dates: start: 20070613, end: 20070613
  4. IFOSFAMIDE [Concomitant]
     Route: 042
     Dates: start: 20070613, end: 20070615

REACTIONS (2)
  - DRUG INEFFECTIVE [None]
  - FEBRILE NEUTROPENIA [None]
